FAERS Safety Report 4794085-0 (Version None)
Quarter: 2005Q4

REPORT INFORMATION
  Report Type: 
  Country: None (occurrence: None)
  Receive Date: 20051011
  Receipt Date: 20050916
  Transmission Date: 20060501
  Serious: Yes (Death, Hospitalization)
  Sender: FDA-Public Use
  Company Number: PHNU2005DE03202

PATIENT
  Age: 68 Year
  Sex: Male
  Weight: 72 kg

DRUGS (3)
  1. SANDIMMUNE [Suspect]
     Indication: RENAL TRANSPLANT
     Dosage: 120 MG/DAY
     Route: 048
     Dates: start: 20010420
  2. URBASON [Suspect]
     Indication: RENAL TRANSPLANT
     Dosage: 6 MG DAILY
     Route: 048
     Dates: start: 20010703
  3. CELLCEPT [Suspect]
     Indication: RENAL TRANSPLANT
     Dosage: 1500 MG DAILY
     Route: 048
     Dates: start: 20010703

REACTIONS (2)
  - RENAL FAILURE ACUTE [None]
  - SEPSIS [None]
